FAERS Safety Report 8668863 (Version 14)
Quarter: 2015Q4

REPORT INFORMATION
  Report Type: Spontaneous
  Country: GB (occurrence: GB)
  Receive Date: 20120717
  Receipt Date: 20151009
  Transmission Date: 20160305
  Serious: Yes (Other)
  Sender: FDA-Public Use
  Company Number: PHFR2012GB002262

PATIENT
  Age: 43 Year
  Sex: Female

DRUGS (6)
  1. CLOZARIL [Suspect]
     Active Substance: CLOZAPINE
     Dosage: 200 MG, QD
     Route: 048
  2. CLOZARIL [Suspect]
     Active Substance: CLOZAPINE
     Dosage: 100 MG, BID
     Route: 048
     Dates: start: 200712
  3. CLOZARIL [Suspect]
     Active Substance: CLOZAPINE
     Indication: SCHIZOPHRENIA
     Dosage: UNK
     Route: 048
     Dates: start: 20071012
  4. HYOSCINE BROMIDE [Concomitant]
     Indication: SCHIZOPHRENIA
     Dosage: 300 MG
     Route: 048
  5. FLUOXETINE [Concomitant]
     Active Substance: FLUOXETINE HYDROCHLORIDE
     Indication: DEPRESSION
     Dosage: 20 MG
     Route: 048
  6. LANSOPRAZOLE. [Concomitant]
     Active Substance: LANSOPRAZOLE
     Indication: PROPHYLAXIS
     Dosage: 15 MG
     Route: 048
     Dates: start: 20121010

REACTIONS (10)
  - Bone marrow granuloma [Unknown]
  - Lymphoma [Unknown]
  - Malaise [Unknown]
  - Hepatomegaly [Unknown]
  - Thrombocytopenia [Not Recovered/Not Resolved]
  - Sarcoidosis [Not Recovered/Not Resolved]
  - Splenomegaly [Unknown]
  - Anaemia [Recovering/Resolving]
  - Lymphadenopathy mediastinal [Unknown]
  - Splenic lesion [Unknown]

NARRATIVE: CASE EVENT DATE: 20101221
